FAERS Safety Report 16181850 (Version 1)
Quarter: 2019Q2

REPORT INFORMATION
  Report Type: Spontaneous
  Country: CN (occurrence: CN)
  Receive Date: 20190410
  Receipt Date: 20190410
  Transmission Date: 20190711
  Serious: Yes (Other)
  Sender: FDA-Public Use
  Company Number: CN-SHIRE-CN201911448

PATIENT
  Sex: Female

DRUGS (1)
  1. RESOLOR [Suspect]
     Active Substance: PRUCALOPRIDE SUCCINATE
     Indication: CONSTIPATION
     Dosage: 2 MILLIGRAM FOR 7 DAYS
     Route: 065

REACTIONS (2)
  - Respiratory depression [Unknown]
  - Drug ineffective [Unknown]
